FAERS Safety Report 25180671 (Version 1)
Quarter: 2025Q2

REPORT INFORMATION
  Report Type: Spontaneous
  Country: FR (occurrence: FR)
  Receive Date: 20250409
  Receipt Date: 20250409
  Transmission Date: 20250716
  Serious: Yes (Other)
  Sender: SANDOZ
  Company Number: FR-SANDOZ-SDZ2025FR021640

PATIENT
  Age: 78 Year
  Sex: Female

DRUGS (8)
  1. CANDESARTAN CILEXETIL\HYDROCHLOROTHIAZIDE [Suspect]
     Active Substance: CANDESARTAN CILEXETIL\HYDROCHLOROTHIAZIDE
     Indication: Hypertension
     Dosage: 1 DF, QD FOR 1 YEAR, 8 MG/12.5 MG
     Route: 065
     Dates: start: 202402, end: 202502
  2. CANDESARTAN CILEXETIL\HYDROCHLOROTHIAZIDE [Suspect]
     Active Substance: CANDESARTAN CILEXETIL\HYDROCHLOROTHIAZIDE
     Dosage: 1.5 DF, QD
     Route: 065
     Dates: start: 2025
  3. CANDESARTAN CILEXETIL\HYDROCHLOROTHIAZIDE [Suspect]
     Active Substance: CANDESARTAN CILEXETIL\HYDROCHLOROTHIAZIDE
     Dosage: 2 DF, QD
     Route: 065
     Dates: start: 2025, end: 2025
  4. CHONDROITIN SULFATE (BOVINE) [Concomitant]
     Active Substance: CHONDROITIN SULFATE (BOVINE)
     Indication: Product used for unknown indication
     Route: 065
     Dates: end: 2025
  5. MAGNESIUM [Concomitant]
     Active Substance: MAGNESIUM
     Indication: Product used for unknown indication
     Route: 065
  6. RICE BRAN OIL [Concomitant]
     Active Substance: RICE BRAN OIL
     Indication: Product used for unknown indication
     Route: 065
  7. SILICON [Concomitant]
     Active Substance: SILICON
     Indication: Product used for unknown indication
     Route: 065
     Dates: end: 2025
  8. STEROGYL [Concomitant]
     Active Substance: ERGOCALCIFEROL
     Indication: Product used for unknown indication
     Route: 065
     Dates: end: 2025

REACTIONS (4)
  - Hypertension [Unknown]
  - Hypotension [Unknown]
  - Muscle spasms [Unknown]
  - Drug ineffective [Unknown]

NARRATIVE: CASE EVENT DATE: 20250101
